FAERS Safety Report 11677340 (Version 1)
Quarter: 2015Q4

REPORT INFORMATION
  Report Type: Spontaneous
  Country: US (occurrence: US)
  Receive Date: 20151027
  Receipt Date: 20151027
  Transmission Date: 20160304
  Serious: No
  Sender: FDA-Public Use
  Company Number: US-ELI_LILLY_AND_COMPANY-US201004000276

PATIENT
  Age: 52 Year
  Sex: Female

DRUGS (5)
  1. OSCAL [Concomitant]
     Active Substance: CALCIUM CARBONATE
     Dosage: 1500 MG, DAILY (1/D)
  2. FORTEO [Suspect]
     Active Substance: TERIPARATIDE
     Dosage: 20 UG, DAILY (1/D)
  3. FORTEO [Suspect]
     Active Substance: TERIPARATIDE
     Dosage: 20 UG, DAILY (1/D)
  4. VITAMIN D [Concomitant]
     Active Substance: CHOLECALCIFEROL
     Dosage: 2000 U, UNK
  5. FORTEO [Suspect]
     Active Substance: TERIPARATIDE
     Indication: FRACTURE
     Dosage: 20 UG, DAILY (1/D)
     Dates: start: 20090515

REACTIONS (8)
  - Pain in extremity [Unknown]
  - Off label use [Not Recovered/Not Resolved]
  - Injection site erythema [Not Recovered/Not Resolved]
  - Myalgia [Recovered/Resolved]
  - Plantar fasciitis [Unknown]
  - Tendon pain [Unknown]
  - Hot flush [Unknown]
  - Arthralgia [Recovered/Resolved]

NARRATIVE: CASE EVENT DATE: 20090515
